FAERS Safety Report 13550178 (Version 4)
Quarter: 2017Q4

REPORT INFORMATION
  Report Type: Spontaneous
  Country: JP (occurrence: JP)
  Receive Date: 20170516
  Receipt Date: 20171221
  Transmission Date: 20180320
  Serious: Yes (Death, Other)
  Sender: FDA-Public Use
  Company Number: JP-009507513-1705JPN000678J

PATIENT
  Age: 54 Year
  Sex: Male
  Weight: 58 kg

DRUGS (7)
  1. KEYTRUDA [Suspect]
     Active Substance: PEMBROLIZUMAB
     Indication: LUNG ADENOCARCINOMA
     Dosage: 200 MG, Q3W
     Route: 041
     Dates: start: 20170314, end: 20170314
  2. HUSCODE [Concomitant]
     Active Substance: CHLORPHENIRAMINE MALEAT\DIHYDROCODEINE PHOSPHATE\METHYLEPHEDRINE HYDROCHLORIDE, DL-
     Indication: LUNG ADENOCARCINOMA
     Dosage: 3 ML, TID
     Route: 048
     Dates: end: 20170327
  3. ROZEREM [Concomitant]
     Active Substance: RAMELTEON
     Dosage: 1 DF, QD
     Route: 048
     Dates: end: 20170327
  4. OPSO [Concomitant]
     Active Substance: MORPHINE HYDROCHLORIDE
     Indication: LUNG ADENOCARCINOMA
     Dosage: 1 DF, PRN
     Route: 048
     Dates: start: 20170317, end: 20170327
  5. DECADRON [Concomitant]
     Active Substance: DEXAMETHASONE
     Indication: LUNG ADENOCARCINOMA
     Dosage: 1 DF, QD
     Route: 048
     Dates: start: 20170316, end: 20170327
  6. ZOLPIDEM TARTRATE OD [Concomitant]
     Active Substance: ZOLPIDEM TARTRATE
     Dosage: 2 DF, QD
     Route: 048
     Dates: end: 20170327
  7. PRIMPERAN [Concomitant]
     Active Substance: METOCLOPRAMIDE HYDROCHLORIDE
     Indication: PROPHYLAXIS
     Dosage: 1 DF, PRN
     Route: 048
     Dates: start: 20170314, end: 20170327

REACTIONS (1)
  - Malignant neoplasm progression [Fatal]

NARRATIVE: CASE EVENT DATE: 20170327
